FAERS Safety Report 10215130 (Version 6)
Quarter: 2016Q3

REPORT INFORMATION
  Report Type: Report from Study
  Country: US (occurrence: US)
  Receive Date: 20140603
  Receipt Date: 20160809
  Transmission Date: 20161109
  Serious: Yes (Other)
  Sender: FDA-Public Use
  Company Number: US-SA-2014SA050226

PATIENT
  Age: 62 Year
  Sex: Female
  Weight: 91.7 kg

DRUGS (20)
  1. LIPITOR [Concomitant]
     Active Substance: ATORVASTATIN CALCIUM
  2. WELLBUTRIN [Concomitant]
     Active Substance: BUPROPION HYDROCHLORIDE
  3. TOPAMAX [Concomitant]
     Active Substance: TOPIRAMATE
  4. ASPIRIN. [Concomitant]
     Active Substance: ASPIRIN
  5. AMBIEN [Concomitant]
     Active Substance: ZOLPIDEM TARTRATE
  6. AUBAGIO [Suspect]
     Active Substance: TERIFLUNOMIDE
     Indication: MULTIPLE SCLEROSIS
     Route: 048
     Dates: start: 20140410
  7. BACLOFEN. [Concomitant]
     Active Substance: BACLOFEN
  8. PROAIR HFA [Concomitant]
     Active Substance: ALBUTEROL SULFATE
  9. METOPROLOL. [Concomitant]
     Active Substance: METOPROLOL
  10. L-THYROXINE [Concomitant]
     Active Substance: LEVOTHYROXINE
  11. CLONAZEPAM. [Concomitant]
     Active Substance: CLONAZEPAM
  12. VITAMIN D [Concomitant]
     Active Substance: CHOLECALCIFEROL
  13. FISH OIL [Concomitant]
     Active Substance: FISH OIL
  14. AUBAGIO [Suspect]
     Active Substance: TERIFLUNOMIDE
     Indication: MULTIPLE SCLEROSIS
     Route: 048
     Dates: start: 20140115
  15. PLAQUENIL [Concomitant]
     Active Substance: HYDROXYCHLOROQUINE SULFATE
  16. AMPYRA [Concomitant]
     Active Substance: DALFAMPRIDINE
     Dates: end: 201511
  17. AUBAGIO [Suspect]
     Active Substance: TERIFLUNOMIDE
     Indication: MULTIPLE SCLEROSIS
     Route: 048
     Dates: start: 20140505
  18. CLOZARIL [Concomitant]
     Active Substance: CLOZAPINE
     Dosage: 150 MG Q A.M. AND 150 MG Q P.M.
  19. TYLENOL WITH CODEINE [Concomitant]
     Active Substance: ACETAMINOPHEN\CODEINE PHOSPHATE
  20. ADVAIR HFA [Concomitant]
     Active Substance: FLUTICASONE PROPIONATE\SALMETEROL XINAFOATE
     Dosage: 100/50 EVERY 4 HOURS P.R.N.

REACTIONS (16)
  - Nasopharyngitis [Recovered/Resolved]
  - Oral herpes [Recovered/Resolved]
  - Upper limb fracture [Unknown]
  - Cough [Recovered/Resolved]
  - Nausea [Recovered/Resolved]
  - Fall [Unknown]
  - Scoliosis [Unknown]
  - Pneumonia [Recovered/Resolved]
  - Gastrooesophageal reflux disease [Not Recovered/Not Resolved]
  - Renal pain [Unknown]
  - Diarrhoea [Unknown]
  - Intervertebral disc protrusion [Unknown]
  - Anal incontinence [Recovering/Resolving]
  - Nodule [Unknown]
  - Pyrexia [Recovered/Resolved]
  - Vomiting [Recovering/Resolving]

NARRATIVE: CASE EVENT DATE: 20140428
